FAERS Safety Report 9666556 (Version 1)
Quarter: 2013Q4

REPORT INFORMATION
  Report Type: Spontaneous
  Country: RU (occurrence: RU)
  Receive Date: 20131104
  Receipt Date: 20131104
  Transmission Date: 20140711
  Serious: Yes (Death, Life-Threatening, Other)
  Sender: FDA-Public Use
  Company Number: RU-ASTRAZENECA-2013SE80705

PATIENT
  Age: 61 Year
  Sex: Male
  Weight: 75 kg

DRUGS (10)
  1. BRILINTA [Suspect]
     Indication: ACUTE CORONARY SYNDROME
     Route: 048
     Dates: start: 20130610
  2. HEPARIN [Concomitant]
     Route: 040
  3. OMEZ (OMEPRAZOLE) [Concomitant]
     Route: 048
  4. ASPIRIN [Concomitant]
     Route: 048
  5. MORPHINE [Concomitant]
  6. AKTOLIPID [Concomitant]
  7. FUROSEMIDE [Concomitant]
  8. CORDARONE [Concomitant]
  9. LASIX [Concomitant]
  10. EGILOK (METOPROLOL) [Concomitant]

REACTIONS (4)
  - Death [Fatal]
  - Transient ischaemic attack [Unknown]
  - Thrombosis in device [Unknown]
  - Cardiogenic shock [Unknown]
